FAERS Safety Report 23780110 (Version 1)
Quarter: 2024Q2

REPORT INFORMATION
  Report Type: Spontaneous
  Country: US (occurrence: US)
  Receive Date: 20240424
  Receipt Date: 20240424
  Transmission Date: 20240716
  Serious: Yes (Hospitalization, Other)
  Sender: FDA-Public Use
  Company Number: US-BRISTOL-MYERS SQUIBB COMPANY-2024-061525

PATIENT
  Age: 64 Year
  Sex: Male
  Weight: 96.62 kg

DRUGS (2)
  1. REVLIMID [Suspect]
     Active Substance: LENALIDOMIDE
     Indication: Plasma cell myeloma
     Route: 048
     Dates: start: 20230101
  2. REVLIMID [Suspect]
     Active Substance: LENALIDOMIDE
     Dates: start: 20240410

REACTIONS (5)
  - Influenza [Recovered/Resolved]
  - H1N1 influenza [Recovered/Resolved]
  - Pneumonia [Recovered/Resolved]
  - Immune system disorder [Unknown]
  - White blood cell count decreased [Unknown]
